FAERS Safety Report 6346022-5 (Version None)
Quarter: 2009Q3

REPORT INFORMATION
  Report Type: 
  Country: None (occurrence: None)
  Receive Date: 20090909
  Receipt Date: 20090901
  Transmission Date: 20100115
  Serious: Yes (Death)
  Sender: FDA-Public Use
  Company Number: IN-BAXTER-2009BH013671

PATIENT
  Age: 33 Year
  Sex: Male

DRUGS (2)
  1. DIANEAL [Suspect]
     Indication: PERITONEAL DIALYSIS
     Route: 033
     Dates: start: 20090819, end: 20090826
  2. DIANEAL [Suspect]
     Route: 033
     Dates: start: 20090819, end: 20090826

REACTIONS (2)
  - CARDIAC ARREST [None]
  - CATHETER RELATED COMPLICATION [None]
